FAERS Safety Report 7583595-9 (Version None)
Quarter: 2011Q2

REPORT INFORMATION
  Report Type: 
  Country: None (occurrence: None)
  Receive Date: 20110630
  Receipt Date: 20110627
  Transmission Date: 20111010
  Serious: Yes (Other)
  Sender: FDA-Public Use
  Company Number: A0926669A

PATIENT
  Sex: Male

DRUGS (12)
  1. ENALAPRIL MALEATE [Concomitant]
  2. CRESTOR [Concomitant]
  3. VENTOLIN HFA [Concomitant]
     Route: 065
  4. VASOTEC [Concomitant]
     Dosage: 5MG PER DAY
     Route: 065
  5. ADVAIR DISKUS 100/50 [Suspect]
     Indication: ASTHMA
     Dosage: 1PUFF TWICE PER DAY
     Route: 055
     Dates: start: 20091021
  6. RANITIDINE [Concomitant]
     Dosage: 150MG PER DAY
     Route: 065
  7. ATROVENT [Concomitant]
     Dosage: 1PUFF THREE TIMES PER DAY
  8. TYLENOL-500 [Concomitant]
     Route: 065
  9. FLOVENT [Suspect]
     Route: 065
     Dates: end: 20090101
  10. GABAPENTIN [Concomitant]
     Dosage: 300MG PER DAY
     Route: 065
  11. ASPIRIN [Concomitant]
     Dosage: 80MG PER DAY
     Route: 065
  12. METFORMIN HCL [Concomitant]

REACTIONS (6)
  - APHONIA [None]
  - TRACHEOSTOMY [None]
  - DIABETIC COMA [None]
  - DYSPHONIA [None]
  - PRODUCT QUALITY ISSUE [None]
  - ILL-DEFINED DISORDER [None]
